FAERS Safety Report 5360054-5 (Version None)
Quarter: 2007Q2

REPORT INFORMATION
  Report Type: 
  Country: None (occurrence: None)
  Receive Date: 20070618
  Receipt Date: 20060330
  Transmission Date: 20071010
  Serious: No
  Sender: FDA-Public Use
  Company Number: US-ASTRAZENECA-2006UW05836

PATIENT
  Sex: Female

DRUGS (1)
  1. FASLODEX [Suspect]
     Route: 030
     Dates: start: 20051201

REACTIONS (3)
  - INJECTION SITE NODULE [None]
  - INJECTION SITE REACTION [None]
  - MUSCULOSKELETAL PAIN [None]
